FAERS Safety Report 4570176-4 (Version None)
Quarter: 2005Q1

REPORT INFORMATION
  Report Type: 
  Country: None (occurrence: None)
  Receive Date: 20050202
  Receipt Date: 20050118
  Transmission Date: 20050727
  Serious: Yes (Hospitalization)
  Sender: FDA-Public Use
  Company Number: F01200500097

PATIENT
  Age: 60 Year
  Sex: Male

DRUGS (7)
  1. OXALIPLATIN - SOLUTION - 130 MG/M2 [Suspect]
     Indication: COLORECTAL CANCER METASTATIC
     Dosage: 130 MG/M2 Q3W
     Route: 042
  2. CAPECITABINE - TABLET - 2000 MG/M2 [Suspect]
     Dosage: 2000 MG/M2 FOR 2 WEEKS, Q3W
     Route: 048
  3. BEVACIZUMAB OR PLACEBO - SOLUTION - 7.5 MG/KG [Suspect]
     Dosage: 7.5 MG/KG Q3W
     Route: 042
  4. ALPRAZOLAM [Concomitant]
  5. TRIAZOLAM [Concomitant]
  6. NAPROXEN [Concomitant]
  7. PANTOPRAZOLE [Concomitant]

REACTIONS (2)
  - ANOREXIA [None]
  - GENERAL PHYSICAL HEALTH DETERIORATION [None]
